FAERS Safety Report 4923347-9 (Version None)
Quarter: 2006Q1

REPORT INFORMATION
  Report Type: 
  Country: None (occurrence: None)
  Receive Date: 20060227
  Receipt Date: 20060203
  Transmission Date: 20060701
  Serious: Yes (Hospitalization)
  Sender: FDA-Public Use
  Company Number: 2006UW02093

PATIENT
  Age: 76 Year
  Sex: Male

DRUGS (1)
  1. POLOCAINE [Suspect]
     Indication: NERVE BLOCK
     Route: 053
     Dates: start: 20060203

REACTIONS (2)
  - ERYTHEMA [None]
  - SKIN EXFOLIATION [None]
